FAERS Safety Report 4336283-6 (Version None)
Quarter: 2004Q2

REPORT INFORMATION
  Report Type: 
  Country: None (occurrence: None)
  Receive Date: 20040409
  Receipt Date: 20040409
  Transmission Date: 20050107
  Serious: Yes (Life-Threatening, Hospitalization)
  Sender: FDA-Public Use
  Company Number: None

PATIENT
  Age: 58 Year
  Sex: Female
  Weight: 85.7298 kg

DRUGS (1)
  1. TENORMIN [Suspect]
     Indication: ATRIAL FIBRILLATION
     Dosage: FIRST 50 MG ONCE A DAY

REACTIONS (2)
  - ASTHENIA [None]
  - ATRIAL FIBRILLATION [None]
